FAERS Safety Report 4364288-8 (Version None)
Quarter: 2004Q2

REPORT INFORMATION
  Report Type: 
  Country: None (occurrence: None)
  Receive Date: 20040519
  Receipt Date: 20040505
  Transmission Date: 20050107
  Serious: Yes (Hospitalization)
  Sender: FDA-Public Use
  Company Number: US-2004-025324

PATIENT
  Age: 72 Year
  Sex: Male

DRUGS (1)
  1. CAMPATH [Suspect]
     Indication: CHRONIC LYMPHOCYTIC LEUKAEMIA
     Dosage: 30 MG, SUBCUTANEOUS
     Route: 058
     Dates: start: 20040322, end: 20040401

REACTIONS (4)
  - DERMATITIS EXFOLIATIVE [None]
  - GENERALISED OEDEMA [None]
  - ORAL FUNGAL INFECTION [None]
  - WHITE BLOOD CELL COUNT DECREASED [None]
